FAERS Safety Report 7465615-5 (Version None)
Quarter: 2011Q2

REPORT INFORMATION
  Report Type: 
  Country: None (occurrence: None)
  Receive Date: 20110509
  Receipt Date: 20110426
  Transmission Date: 20111010
  Serious: Yes (Other)
  Sender: FDA-Public Use
  Company Number: US-CELGENEUS-163-21880-11023254

PATIENT
  Sex: Female

DRUGS (5)
  1. REVLIMID [Suspect]
     Dosage: 10 MILLIGRAM
     Route: 048
     Dates: start: 20101201
  2. ACYCLOVIR [Concomitant]
     Route: 065
  3. REVLIMID [Suspect]
     Dosage: 25 MILLIGRAM
     Route: 048
     Dates: start: 20100401, end: 20100101
  4. TRAMADOL [Concomitant]
     Route: 065
  5. GLUCOSAMINE [Concomitant]
     Route: 065

REACTIONS (1)
  - VIITH NERVE PARALYSIS [None]
